FAERS Safety Report 4389676-5 (Version None)
Quarter: 2004Q2

REPORT INFORMATION
  Report Type: 
  Country: None (occurrence: None)
  Receive Date: 20040630
  Receipt Date: 20040615
  Transmission Date: 20050107
  Serious: Yes (Death)
  Sender: FDA-Public Use
  Company Number: 04P-167-0263972-00

PATIENT
  Age: 65 Year
  Sex: Male
  Weight: 106 kg

DRUGS (7)
  1. HUMIRA [Suspect]
     Indication: RHEUMATOID ARTHRITIS
     Dosage: 40 MG, SUBCUTANEOUS
     Route: 058
     Dates: start: 20040223
  2. METHOTREXATE [Concomitant]
  3. ROFECOXIB [Concomitant]
  4. ASPIRIN [Concomitant]
  5. TAMSULOSIN [Concomitant]
  6. MULTIVITAMIN [Concomitant]
  7. PREDNISOLONE [Concomitant]

REACTIONS (2)
  - PNEUMOTHORAX [None]
  - PULMONARY FIBROSIS [None]
